FAERS Safety Report 9169152 (Version 1)
Quarter: 2013Q1

REPORT INFORMATION
  Report Type: Spontaneous
  Country: BR (occurrence: BR)
  Receive Date: 20130318
  Receipt Date: 20130318
  Transmission Date: 20140127
  Serious: Yes (Other)
  Sender: FDA-Public Use
  Company Number: BR-PFIZER INC-2013084687

PATIENT
  Age: 71 Year
  Sex: Male

DRUGS (1)
  1. XALATAN [Suspect]
     Indication: CATARACT
     Dosage: 3 UG, 1 DROP IN EACH EYE 3X/DAY (MORNING, AFTERNOON AND NIGHT)
     Route: 047
     Dates: start: 2008, end: 201203

REACTIONS (4)
  - Cataract [Unknown]
  - Off label use [Unknown]
  - Off label use [Unknown]
  - Lacrimation increased [Unknown]
